FAERS Safety Report 20790943 (Version 1)
Quarter: 2022Q2

REPORT INFORMATION
  Report Type: Spontaneous
  Country: PT (occurrence: PT)
  Receive Date: 20220505
  Receipt Date: 20220505
  Transmission Date: 20220720
  Serious: Yes (Death, Other)
  Sender: FDA-Public Use
  Company Number: PT-SLATE RUN PHARMACEUTICALS-22PT001065

PATIENT

DRUGS (7)
  1. VORICONAZOLE [Suspect]
     Active Substance: VORICONAZOLE
     Indication: Bronchopulmonary aspergillosis
     Dosage: 300 MILLIGRAM, Q 12 HR
  2. MEROPENEM [Suspect]
     Active Substance: MEROPENEM
     Indication: Bronchopulmonary aspergillosis
     Dosage: 1 GRAM, Q 8 HR
  3. LINEZOLID [Suspect]
     Active Substance: LINEZOLID
     Indication: Bronchopulmonary aspergillosis
     Dosage: 600 MILLIGRAM, Q 12 HR
  4. DEXAMETHASONE [Concomitant]
     Active Substance: DEXAMETHASONE
     Indication: Product used for unknown indication
     Dosage: 16 MILLIGRAM, QD
     Route: 042
  5. PIPERACILLIN AND TAZOBACTAM [Concomitant]
     Active Substance: PIPERACILLIN SODIUM\TAZOBACTAM SODIUM
     Indication: Tracheobronchitis
     Dosage: 4.5 MILLIGRAM, Q 8 HR
  6. PREDNISOLONE [Concomitant]
     Active Substance: PREDNISOLONE
     Indication: Drug therapy
     Dosage: 20 MILLIGRAM, QD, WEANED OFF
     Route: 048
  7. PREDNISOLONE [Concomitant]
     Active Substance: PREDNISOLONE
     Dosage: 20 MILLIGRAM, QD
     Route: 048

REACTIONS (3)
  - Multiple organ dysfunction syndrome [Fatal]
  - Disease progression [Not Recovered/Not Resolved]
  - Treatment failure [Not Recovered/Not Resolved]
